FAERS Safety Report 7301824-3 (Version None)
Quarter: 2011Q1

REPORT INFORMATION
  Report Type: 
  Country: None (occurrence: None)
  Receive Date: 20110218
  Receipt Date: 20110210
  Transmission Date: 20110831
  Serious: Yes (Disabling)
  Sender: FDA-Public Use
  Company Number: B0700538A

PATIENT
  Age: 10 Year
  Sex: Male

DRUGS (1)
  1. CLENIL MODULITE [Suspect]
     Indication: ASTHMA
     Route: 055
     Dates: start: 20101209, end: 20110122

REACTIONS (4)
  - SCHOOL REFUSAL [None]
  - PERSONALITY CHANGE [None]
  - ANXIETY [None]
  - ENURESIS [None]
